FAERS Safety Report 11544862 (Version 2)
Quarter: 2015Q4

REPORT INFORMATION
  Report Type: Spontaneous
  Country: SE (occurrence: SE)
  Receive Date: 20150924
  Receipt Date: 20151120
  Transmission Date: 20160304
  Serious: Yes (Other)
  Sender: FDA-Public Use
  Company Number: SE-ACTAVIS-2015-19904

PATIENT
  Sex: Female

DRUGS (1)
  1. ATENOLOL ACTAVIS [Suspect]
     Active Substance: ATENOLOL
     Indication: PRODUCT USED FOR UNKNOWN INDICATION
     Dosage: UNK, UNKNOWN
     Route: 065

REACTIONS (4)
  - Obstructive airways disorder [Unknown]
  - Fatigue [Unknown]
  - Cough [Unknown]
  - Vomiting [Unknown]
